FAERS Safety Report 9360831 (Version 1)
Quarter: 2013Q2

REPORT INFORMATION
  Report Type: Spontaneous
  Country: US (occurrence: None)
  Receive Date: 20130618
  Receipt Date: 20130618
  Transmission Date: 20140414
  Serious: Yes (Death, Life-Threatening, Hospitalization, Other)
  Sender: FDA-Public Use
  Company Number: TCI2012A04160

PATIENT
  Age: 61 Year
  Sex: Male

DRUGS (1)
  1. NESINA [Suspect]
     Indication: DIABETES MELLITUS
     Route: 048
     Dates: start: 20120310, end: 20120601

REACTIONS (2)
  - Leukaemia [None]
  - Cerebral haemorrhage [None]
